FAERS Safety Report 4668706-7 (Version None)
Quarter: 2005Q2

REPORT INFORMATION
  Report Type: 
  Country: None (occurrence: None)
  Receive Date: 20050519
  Receipt Date: 20050504
  Transmission Date: 20051028
  Serious: Yes (Other)
  Sender: FDA-Public Use
  Company Number: PHBS2005GB06328

PATIENT
  Age: 47 Year
  Sex: Male

DRUGS (11)
  1. PROTIUM(PANTOPRAZOLE) UNKNOWN [Suspect]
     Dosage: INTRAVENOUS
     Route: 042
  2. RIFAMPICIN [Suspect]
     Dosage: INTRAVENOUS
     Route: 042
  3. ZYVOX [Suspect]
     Indication: BACTERIAL INFECTION
     Dosage: 1200 MG/DAY, INTRAVENOUS
     Route: 042
     Dates: start: 20041017, end: 20041020
  4. DOXAZOSIN(DOXAZOSIN) [Suspect]
     Dosage: ORAL
     Route: 048
  5. PROCYCLIDINE HYDROCHLORIDE 2MG TAB [Suspect]
     Dosage: ORAL
     Route: 048
  6. ATENOLOL [Suspect]
     Dosage: ORAL
     Route: 048
  7. FENTANYL [Suspect]
     Dosage: INTRAVENOUS
     Route: 042
  8. AMISULPRIDE(AMISULPRIDE) [Suspect]
     Dosage: ORAL
     Route: 048
  9. OMEPRAZOLE [Suspect]
  10. ZOPICLONE(ZOPICLONE) [Suspect]
  11. HALOPERIDOL [Suspect]

REACTIONS (2)
  - BLOOD PRESSURE SYSTOLIC INCREASED [None]
  - DRUG INTERACTION [None]
